FAERS Safety Report 9030755 (Version 1)
Quarter: 2013Q1

REPORT INFORMATION
  Report Type: Other
  Country: JP (occurrence: JP)
  Receive Date: 20130123
  Receipt Date: 20130123
  Transmission Date: 20140127
  Serious: Yes (Hospitalization)
  Sender: FDA-Public Use
  Company Number: JP-ACTELION-A-CH2013-78010

PATIENT
  Age: 28 Year
  Sex: Female

DRUGS (2)
  1. TRACLEER [Suspect]
     Indication: PULMONARY ARTERIAL HYPERTENSION
     Dosage: UNK
     Route: 048
  2. EPOPROSTENOL [Concomitant]

REACTIONS (12)
  - Basedow^s disease [Recovering/Resolving]
  - Hyperthyroidism [Recovering/Resolving]
  - Thyroid function test abnormal [Recovering/Resolving]
  - Weight decreased [Recovering/Resolving]
  - Palpitations [Recovering/Resolving]
  - Nausea [Recovering/Resolving]
  - Sinus tachycardia [Recovering/Resolving]
  - Dyspnoea [Recovering/Resolving]
  - Pulmonary arterial pressure [Recovering/Resolving]
  - Condition aggravated [Recovering/Resolving]
  - Radioactive iodine therapy [Recovering/Resolving]
  - Cardiac failure [None]
